FAERS Safety Report 14545444 (Version 2)
Quarter: 2018Q2

REPORT INFORMATION
  Report Type: Spontaneous
  Country: GB (occurrence: GB)
  Receive Date: 20180219
  Receipt Date: 20180409
  Transmission Date: 20180711
  Serious: Yes (Death, Hospitalization)
  Sender: FDA-Public Use
  Company Number: GB-MYLANLABS-2018M1012777

PATIENT
  Age: 40 Year
  Sex: Female
  Weight: 132 kg

DRUGS (12)
  1. OMEPRAZOLE. [Concomitant]
     Active Substance: OMEPRAZOLE
     Indication: GASTROOESOPHAGEAL REFLUX DISEASE
     Dosage: 20 MG, AM
     Route: 048
  2. COLECALCIFEROL [Concomitant]
     Active Substance: CHOLECALCIFEROL
     Indication: VITAMIN D DEFICIENCY
     Dosage: 800 IU, QD
     Route: 048
  3. LEVOTHYROXINE. [Concomitant]
     Active Substance: LEVOTHYROXINE
     Indication: HYPOTHYROIDISM
     Dosage: 125 ?G, QD
     Route: 048
  4. CLOZARIL [Suspect]
     Active Substance: CLOZAPINE
     Indication: SCHIZOPHRENIA
     Dosage: UNK
     Route: 048
     Dates: start: 201504
  5. METFORMIN [Concomitant]
     Active Substance: METFORMIN HYDROCHLORIDE
     Indication: METABOLIC SYNDROME
     Dosage: 1 G, BID
     Route: 048
  6. LORAZEPAM. [Concomitant]
     Active Substance: LORAZEPAM
     Indication: AGITATION
     Dosage: 1 MG, PRN
     Route: 048
  7. TOLTERODINE TARTRATE. [Concomitant]
     Active Substance: TOLTERODINE TARTRATE
     Indication: URINARY INCONTINENCE
     Dosage: 2 MG, BID
     Route: 048
  8. CLOZARIL [Suspect]
     Active Substance: CLOZAPINE
     Indication: BORDERLINE PERSONALITY DISORDER
     Dosage: 125 MG, BID
     Route: 048
     Dates: start: 20160428, end: 20180128
  9. ZEROBASE                           /00103901/ [Concomitant]
     Indication: DRY SKIN
     Dosage: UNK, BID
     Route: 061
  10. SERTRALINE [Concomitant]
     Active Substance: SERTRALINE HYDROCHLORIDE
     Indication: DEPRESSION
     Dosage: 100 MG, AM
     Route: 048
  11. IBUPROFEN. [Concomitant]
     Active Substance: IBUPROFEN
     Indication: PAIN
     Dosage: 400 MG, PRN
     Route: 048
  12. PARACETAMOL [Concomitant]
     Active Substance: ACETAMINOPHEN
     Indication: PAIN
     Dosage: 1 G, PRN
     Route: 048

REACTIONS (7)
  - Electroencephalogram abnormal [Unknown]
  - Product use in unapproved indication [Unknown]
  - Anoxia [Fatal]
  - Electrocardiogram QT prolonged [Fatal]
  - Syncope [Unknown]
  - Ventricular fibrillation [Fatal]
  - Brain oedema [Unknown]

NARRATIVE: CASE EVENT DATE: 201504
